FAERS Safety Report 7979573-8 (Version None)
Quarter: 2011Q4

REPORT INFORMATION
  Report Type: 
  Country: None (occurrence: None)
  Receive Date: 20111213
  Receipt Date: 20111213
  Transmission Date: 20120403
  Serious: No
  Sender: FDA-Public Use
  Company Number: None

PATIENT
  Age: 54 Year
  Sex: Male
  Weight: 118.4 kg

DRUGS (1)
  1. IODIXANOL [Suspect]
     Indication: CATHETERISATION CARDIAC
     Dosage: 250 ML ONCE IV
     Route: 042
     Dates: start: 20111121, end: 20111121

REACTIONS (1)
  - CONTRAST MEDIA ALLERGY [None]
